FAERS Safety Report 18875651 (Version 1)
Quarter: 2021Q1

REPORT INFORMATION
  Report Type: Spontaneous
  Country: IN (occurrence: IN)
  Receive Date: 20210211
  Receipt Date: 20210211
  Transmission Date: 20210420
  Serious: Yes (Other)
  Sender: FDA-Public Use
  Company Number: IN-MACLEODS PHARMACEUTICALS US LTD-MAC2021030091

PATIENT

DRUGS (1)
  1. TRIAMCINOLONE [Suspect]
     Active Substance: TRIAMCINOLONE
     Indication: CYSTOID MACULAR OEDEMA
     Dosage: 2 DOSAGE FORM, SINGLE, 40 MG/ML, INJECTION, SUBTENON
     Route: 031

REACTIONS (2)
  - Chorioretinopathy [Recovering/Resolving]
  - Glaucoma [Unknown]
